FAERS Safety Report 4884009-X (Version None)
Quarter: 2006Q1

REPORT INFORMATION
  Report Type: 
  Country: None (occurrence: None)
  Receive Date: 20060117
  Receipt Date: 20060103
  Transmission Date: 20060701
  Serious: Yes (Death)
  Sender: FDA-Public Use
  Company Number: US016593

PATIENT
  Age: 62 Year
  Sex: Male

DRUGS (2)
  1. ARSENIC TRIOXIDE [Suspect]
     Indication: ACUTE PROMYELOCYTIC LEUKAEMIA
     Dosage: 15.5 MG QD INTRAVENOUS DRIP
     Route: 041
     Dates: start: 20051227, end: 20051227
  2. ALL-TRANS RETINOIC ACID [Suspect]
     Indication: ACUTE PROMYELOCYTIC LEUKAEMIA
     Dosage: 50 MG BID ORAL
     Route: 048
     Dates: start: 20051218, end: 20051227

REACTIONS (4)
  - ANXIETY [None]
  - DISEASE PROGRESSION [None]
  - RESPIRATORY FAILURE [None]
  - WHITE BLOOD CELL COUNT INCREASED [None]
